FAERS Safety Report 4748910-X (Version None)
Quarter: 2005Q3

REPORT INFORMATION
  Report Type: 
  Country: None (occurrence: None)
  Receive Date: 20050819
  Receipt Date: 20050810
  Transmission Date: 20060218
  Serious: Yes (Death)
  Sender: FDA-Public Use
  Company Number: US-BRISTOL-MYERS SQUIBB COMPANY-13072632

PATIENT
  Age: 86 Year
  Sex: Male

DRUGS (1)
  1. COUMADIN [Suspect]
     Dosage: NDC #: 00056017370

REACTIONS (1)
  - DEATH [None]
